FAERS Safety Report 12340803 (Version 1)
Quarter: 2016Q2

REPORT INFORMATION
  Report Type: Spontaneous
  Country: US (occurrence: None)
  Receive Date: 20160505
  Receipt Date: 20160505
  Transmission Date: 20160815
  Serious: Yes (Hospitalization)
  Sender: FDA-Public Use
  Company Number: None

PATIENT
  Age: 55 Year
  Sex: Female
  Weight: 140.62 kg

DRUGS (6)
  1. ANTIHISTAMINE ALLERGY MEDICINE [Concomitant]
  2. PEROCET [Concomitant]
  3. LISINOPRIL-HCTZ [Concomitant]
     Active Substance: HYDROCHLOROTHIAZIDE\LISINOPRIL
  4. BAYER CHEWABLE LOW DOSE ASPIRIN [Concomitant]
  5. ABILIFY MAINTENA [Suspect]
     Active Substance: ARIPIPRAZOLE
     Indication: BIPOLAR DISORDER
     Dosage: IMQ4WKS
     Route: 030
     Dates: start: 20150404
  6. FLEXERIL [Concomitant]
     Active Substance: CYCLOBENZAPRINE HYDROCHLORIDE

REACTIONS (3)
  - Headache [None]
  - Muscle spasms [None]
  - Cardiomyopathy [None]

NARRATIVE: CASE EVENT DATE: 20150404
